FAERS Safety Report 22517820 (Version 9)
Quarter: 2024Q1

REPORT INFORMATION
  Report Type: Spontaneous
  Country: CA (occurrence: CA)
  Receive Date: 20230604
  Receipt Date: 20240125
  Transmission Date: 20240410
  Serious: Yes (Hospitalization, Other)
  Sender: FDA-Public Use
  Company Number: CA-CELLTRION INC.-2023CA011345

PATIENT

DRUGS (11)
  1. INFLECTRA [Suspect]
     Active Substance: INFLIXIMAB-DYYB
     Indication: Colitis ulcerative
     Dosage: 300 MG INDUCTION W0, 2, 6, THEN EVERY 8 WEEKS HOSPITAL START
     Route: 042
     Dates: start: 20230421, end: 20230505
  2. INFLECTRA [Suspect]
     Active Substance: INFLIXIMAB-DYYB
     Dosage: 300 MG, Q 0, 2, 6, THEN EVERY 8 WEEKS
     Route: 042
     Dates: start: 20230505
  3. INFLECTRA [Suspect]
     Active Substance: INFLIXIMAB-DYYB
     Dosage: 600 MG, WEEK 6 AND THEN EVERY 4 WEEKS (DOSE ADMINISTERED: EARLY WEEK 6 INDUCTION)
     Route: 042
     Dates: start: 20230526
  4. INFLECTRA [Suspect]
     Active Substance: INFLIXIMAB-DYYB
     Dosage: 600 MG, WEEK 6 AND THEN EVERY 4 WEEKS (DOSE ADMINISTERED: EARLY WEEK 6 INDUCTION)
     Route: 042
     Dates: start: 20230623
  5. INFLECTRA [Suspect]
     Active Substance: INFLIXIMAB-DYYB
     Dosage: 600 MG, WEEK 6 AND THEN EVERY 4 WEEKS (DOSE ADMINISTERED: EARLY WEEK 6 INDUCTION)
     Route: 042
     Dates: start: 20231013
  6. INFLECTRA [Suspect]
     Active Substance: INFLIXIMAB-DYYB
     Dosage: 600 MG, WEEK 6 AND THEN EVERY 4 WEEKS (DOSE ADMINISTERED: EARLY WEEK 6 INDUCTION)
     Route: 042
     Dates: start: 20231110
  7. INFLECTRA [Suspect]
     Active Substance: INFLIXIMAB-DYYB
     Dosage: 600 MG, WEEK 6 AND THEN EVERY 4 WEEKS (DOSE ADMINISTERED: EARLY WEEK 6 INDUCTION)
     Route: 042
     Dates: start: 20231110
  8. AZATHIOPRINE [Concomitant]
     Active Substance: AZATHIOPRINE
     Indication: Colitis ulcerative
     Dosage: 100 MG, DAILY
  9. METHADOSE [Concomitant]
     Active Substance: METHADONE HYDROCHLORIDE
     Dosage: UNK
  10. PREDNISONE [Concomitant]
     Active Substance: PREDNISONE
     Indication: Colitis ulcerative
     Dosage: UNK
  11. SERTRALINE [Concomitant]
     Active Substance: SERTRALINE HYDROCHLORIDE
     Dosage: UNK

REACTIONS (7)
  - Anaemia [Recovering/Resolving]
  - Condition aggravated [Recovered/Resolved]
  - Therapeutic product effect incomplete [Unknown]
  - Pallor [Not Recovered/Not Resolved]
  - Constipation [Recovering/Resolving]
  - Faeces discoloured [Unknown]
  - Off label use [Unknown]

NARRATIVE: CASE EVENT DATE: 20230101
